FAERS Safety Report 5291050-4 (Version None)
Quarter: 2007Q2

REPORT INFORMATION
  Report Type: 
  Country: None (occurrence: None)
  Receive Date: 20070409
  Receipt Date: 20070330
  Transmission Date: 20071010
  Serious: Yes (Other)
  Sender: FDA-Public Use
  Company Number: US-AVENTIS-200618768US

PATIENT
  Sex: Female

DRUGS (2)
  1. LOVENOX [Suspect]
  2. CORTICOSTEROIDS [Concomitant]
     Dosage: DOSE: UNK

REACTIONS (1)
  - CUSHINGOID [None]
